FAERS Safety Report 6143665-9 (Version None)
Quarter: 2009Q2

REPORT INFORMATION
  Report Type: 
  Country: None (occurrence: None)
  Receive Date: 20090403
  Receipt Date: 20090326
  Transmission Date: 20091009
  Serious: No
  Sender: FDA-Public Use
  Company Number: US-BAXTER-2009BH003573

PATIENT
  Sex: Female

DRUGS (1)
  1. HEPARIN SODIUM INJECTION [Suspect]
     Indication: PROPHYLACTIC CHEMOTHERAPY
     Route: 065
     Dates: start: 20080101

REACTIONS (1)
  - ADVERSE EVENT [None]
